FAERS Safety Report 7063370-4 (Version None)
Quarter: 2010Q4

REPORT INFORMATION
  Report Type: 
  Country: None (occurrence: None)
  Receive Date: 20101026
  Receipt Date: 20100720
  Transmission Date: 20110411
  Serious: No
  Sender: FDA-Public Use
  Company Number: US-PFIZER INC-2010071845

PATIENT
  Sex: Male
  Weight: 51.247 kg

DRUGS (5)
  1. LIPITOR [Suspect]
     Indication: BLOOD CHOLESTEROL DECREASED
     Dosage: 10 MG, DAILY
     Route: 048
     Dates: start: 20080101
  2. LIPITOR [Suspect]
     Dosage: UNK
     Dates: start: 20080514, end: 20100610
  3. HYDRODIURIL [Concomitant]
     Indication: HYPERTENSION
     Dosage: UNK
  4. VASOTEC [Concomitant]
     Indication: HYPERTENSION
     Dosage: 20 MG, 2X/DAY
  5. NORVASC [Concomitant]
     Indication: HYPERTENSION
     Dosage: 10 MG, DAILY

REACTIONS (6)
  - ARTHRALGIA [None]
  - BACK PAIN [None]
  - MUSCULOSKELETAL PAIN [None]
  - MYALGIA [None]
  - PAIN IN EXTREMITY [None]
  - TENDONITIS [None]
